FAERS Safety Report 11356607 (Version 1)
Quarter: 2015Q3

REPORT INFORMATION
  Report Type: Spontaneous
  Country: US (occurrence: US)
  Receive Date: 20150803
  Receipt Date: 20150803
  Transmission Date: 20151125
  Serious: No
  Sender: FDA-Public Use
  Company Number: US-ELI_LILLY_AND_COMPANY-US201203005383

PATIENT
  Age: 15 Year
  Sex: Male
  Weight: 101 kg

DRUGS (1)
  1. STRATTERA [Suspect]
     Active Substance: ATOMOXETINE HYDROCHLORIDE
     Indication: ATTENTION DEFICIT/HYPERACTIVITY DISORDER
     Dosage: 75 MG, QD
     Dates: start: 201111, end: 20120314

REACTIONS (2)
  - Attention deficit/hyperactivity disorder [Recovered/Resolved]
  - Affective disorder [Recovered/Resolved]
